FAERS Safety Report 9254084 (Version 2)
Quarter: 2013Q2

REPORT INFORMATION
  Report Type: Spontaneous
  Country: FR (occurrence: FR)
  Receive Date: 20130425
  Receipt Date: 20130620
  Transmission Date: 20140414
  Serious: Yes (Hospitalization)
  Sender: FDA-Public Use
  Company Number: FR-ROCHE-1217513

PATIENT
  Age: 68 Year
  Sex: Male

DRUGS (7)
  1. MABTHERA [Suspect]
     Indication: RHEUMATOID ARTHRITIS
     Route: 042
     Dates: start: 2005, end: 201002
  2. VITAMIN B6 [Concomitant]
     Route: 048
  3. INEXIUM [Concomitant]
     Route: 048
  4. MUCOMYST [Concomitant]
     Route: 048
  5. VITAMIN B1 [Concomitant]
     Route: 048
  6. TARDYFERON B9 [Concomitant]
     Route: 048
  7. JOSIR [Concomitant]
     Route: 048

REACTIONS (2)
  - Intervertebral discitis [Recovered/Resolved]
  - Epiduritis [Recovered/Resolved]
